FAERS Safety Report 5268359-3 (Version None)
Quarter: 2007Q1

REPORT INFORMATION
  Report Type: 
  Country: None (occurrence: None)
  Receive Date: 20070313
  Receipt Date: 20070302
  Transmission Date: 20070707
  Serious: Yes (Other)
  Sender: FDA-Public Use
  Company Number: 2007RL000087

PATIENT
  Age: 72 Year
  Sex: Female

DRUGS (4)
  1. RYTHMOL [Suspect]
     Indication: DRUG USE FOR UNKNOWN INDICATION
     Dosage: 225 MG; BID; PO
     Route: 048
  2. RYTHMOL [Suspect]
     Indication: DRUG USE FOR UNKNOWN INDICATION
     Dosage: 450 MG;
  3. TOPROL-XL [Concomitant]
  4. COUMADIN [Concomitant]

REACTIONS (4)
  - CHOLESTASIS [None]
  - DECREASED APPETITE [None]
  - DYSGEUSIA [None]
  - INTERNATIONAL NORMALISED RATIO INCREASED [None]
